FAERS Safety Report 15358569 (Version 1)
Quarter: 2018Q3

REPORT INFORMATION
  Report Type: Spontaneous
  Country: IT (occurrence: IT)
  Receive Date: 20180906
  Receipt Date: 20180906
  Transmission Date: 20181010
  Serious: Yes (Other)
  Sender: FDA-Public Use
  Company Number: IT-MYLANLABS-2018M1065740

PATIENT
  Age: 33 Year
  Sex: Male

DRUGS (5)
  1. ENTUMIN [Concomitant]
     Active Substance: CLOTHIAPINE
     Indication: INSOMNIA
     Dosage: 10 GTT, UNK
  2. CLOZAPINE. [Suspect]
     Active Substance: CLOZAPINE
     Indication: HYSTERICAL PSYCHOSIS
     Dosage: 400 MG, QD
     Route: 048
     Dates: start: 20141028
  3. EN [Concomitant]
     Active Substance: DELORAZEPAM
     Indication: ANXIETY
     Dosage: 40 GTT, UNK
     Route: 048
  4. DEPAKIN [Concomitant]
     Active Substance: VALPROATE SODIUM
     Indication: PRODUCT USED FOR UNKNOWN INDICATION
     Dosage: 1000 MG, UNK
  5. CLOZAPINE. [Suspect]
     Active Substance: CLOZAPINE
     Dosage: 300 MG, QD
     Route: 048
     Dates: start: 2014

REACTIONS (2)
  - Agranulocytosis [Unknown]
  - Off label use [Unknown]

NARRATIVE: CASE EVENT DATE: 20141028
